FAERS Safety Report 10420055 (Version 1)
Quarter: 2014Q3

REPORT INFORMATION
  Report Type: Report from Study
  Country: US (occurrence: US)
  Receive Date: 20140829
  Receipt Date: 20140829
  Transmission Date: 20150326
  Serious: Yes (Other)
  Sender: FDA-Public Use
  Company Number: US-TEVA-505094USA

PATIENT
  Sex: Female

DRUGS (3)
  1. ACTIQ [Suspect]
     Active Substance: FENTANYL CITRATE
     Indication: PRODUCT USED FOR UNKNOWN INDICATION
     Route: 048
  2. FENTORA [Suspect]
     Active Substance: FENTANYL CITRATE
     Indication: PRODUCT USED FOR UNKNOWN INDICATION
     Route: 002
  3. SUBSYS [Suspect]
     Active Substance: FENTANYL
     Route: 060

REACTIONS (5)
  - Migraine [Unknown]
  - Headache [Unknown]
  - Dyspnoea [Unknown]
  - Neck injury [Unknown]
  - Convulsion [Unknown]
